FAERS Safety Report 10163472 (Version 1)
Quarter: 2014Q2

REPORT INFORMATION
  Report Type: Spontaneous
  Country: US (occurrence: US)
  Receive Date: 20140509
  Receipt Date: 20140509
  Transmission Date: 20141212
  Serious: Yes (Hospitalization)
  Sender: FDA-Public Use
  Company Number: US-AMGEN INC.-USASP2014033044

PATIENT
  Age: 62 Year
  Sex: Female

DRUGS (7)
  1. PROLIA [Suspect]
     Indication: PRODUCT USED FOR UNKNOWN INDICATION
     Dosage: UNK
     Route: 065
     Dates: start: 2013
  2. AMBIEN CR [Concomitant]
  3. FLEXERIL                           /00428402/ [Concomitant]
     Indication: INSOMNIA
  4. CYMBALTA [Concomitant]
     Indication: ARTHRITIS
  5. CYMBALTA [Concomitant]
     Indication: FIBROMYALGIA
  6. MELOXICAM [Concomitant]
     Indication: ARTHRITIS
  7. MELOXICAM [Concomitant]
     Indication: FIBROMYALGIA

REACTIONS (7)
  - Supraventricular tachycardia [Unknown]
  - Blood pressure abnormal [Unknown]
  - Rosacea [Unknown]
  - Antinuclear antibody increased [Unknown]
  - Arthralgia [Unknown]
  - Myalgia [Unknown]
  - Pain in extremity [Unknown]
